FAERS Safety Report 15005848 (Version 2)
Quarter: 2018Q3

REPORT INFORMATION
  Report Type: Report from Study
  Country: None (occurrence: US)
  Receive Date: 20180613
  Receipt Date: 20180723
  Transmission Date: 20181010
  Serious: Yes (Hospitalization, Other)
  Sender: FDA-Public Use
  Company Number: US-ABBVIE-18K-163-2383547-00

PATIENT
  Age: 76 Year
  Sex: Female
  Weight: 73.09 kg

DRUGS (3)
  1. ADVAIR HFA [Concomitant]
     Active Substance: FLUTICASONE PROPIONATE\SALMETEROL XINAFOATE
     Indication: ASTHMA
  2. HUMIRA [Suspect]
     Active Substance: ADALIMUMAB
     Indication: RHEUMATOID ARTHRITIS
     Route: 058
     Dates: start: 201705, end: 201801
  3. METHOTREXATE. [Suspect]
     Active Substance: METHOTREXATE
     Indication: RHEUMATOID ARTHRITIS
     Route: 065

REACTIONS (12)
  - Intestinal haemorrhage [Recovered/Resolved]
  - Papule [Recovering/Resolving]
  - Asthenia [Recovered/Resolved]
  - Gait disturbance [Recovering/Resolving]
  - Weight increased [Recovering/Resolving]
  - Rheumatoid arthritis [Recovering/Resolving]
  - Coronary artery occlusion [Recovered/Resolved]
  - Balance disorder [Unknown]
  - Gastric ulcer [Recovered/Resolved]
  - Sensitivity to weather change [Not Recovered/Not Resolved]
  - Injection site pain [Unknown]
  - Hypersensitivity [Not Recovered/Not Resolved]

NARRATIVE: CASE EVENT DATE: 2017
